FAERS Safety Report 5695107-5 (Version None)
Quarter: 2008Q2

REPORT INFORMATION
  Report Type: 
  Country: None (occurrence: None)
  Receive Date: 20080404
  Receipt Date: 20080324
  Transmission Date: 20081010
  Serious: Yes (Hospitalization, Other)
  Sender: FDA-Public Use
  Company Number: PFIZER INC-2008017180

PATIENT
  Sex: Female
  Weight: 80.7 kg

DRUGS (3)
  1. LYRICA [Suspect]
     Indication: FIBROMYALGIA
     Dates: start: 20071001, end: 20080101
  2. PREDNISONE [Suspect]
     Indication: ASTHMA
  3. CYMBALTA [Concomitant]

REACTIONS (13)
  - ACTIVITIES OF DAILY LIVING IMPAIRED [None]
  - ASTHENIA [None]
  - CHEST PAIN [None]
  - DIARRHOEA [None]
  - FIBROMYALGIA [None]
  - HEADACHE [None]
  - HYPERTENSION [None]
  - HYPOAESTHESIA [None]
  - INSOMNIA [None]
  - MYALGIA [None]
  - PAIN [None]
  - VOMITING [None]
  - WEIGHT INCREASED [None]
